FAERS Safety Report 22170943 (Version 1)
Quarter: 2023Q2

REPORT INFORMATION
  Report Type: Spontaneous
  Country: US (occurrence: US)
  Receive Date: 20230404
  Receipt Date: 20230404
  Transmission Date: 20230722
  Serious: Yes (Other)
  Sender: FDA-Public Use
  Company Number: US-MYLANLABS-2023M1034957

PATIENT
  Age: 54 Year
  Sex: Female

DRUGS (34)
  1. LORATADINE [Suspect]
     Active Substance: LORATADINE
     Indication: Angiolymphoid hyperplasia with eosinophilia
     Dosage: 10 MILLIGRAM, QD (AS NEEDED, RECEIVING MORE THAN 4 YEARS)
     Route: 065
     Dates: start: 20180518
  2. LORATADINE [Suspect]
     Active Substance: LORATADINE
     Indication: Granuloma skin
     Dosage: UNK, PRN (AS NEEDED)
     Route: 065
  3. METHOTREXATE [Suspect]
     Active Substance: METHOTREXATE
     Indication: Angiolymphoid hyperplasia with eosinophilia
     Dosage: 15 MILLIGRAM, QW
     Route: 048
     Dates: start: 20171213, end: 20180426
  4. METHOTREXATE [Suspect]
     Active Substance: METHOTREXATE
     Indication: Granuloma skin
     Dosage: 25 MILLIGRAM, QW
     Route: 048
     Dates: start: 20180518, end: 20190415
  5. METHOTREXATE [Suspect]
     Active Substance: METHOTREXATE
     Dosage: 15 MILLIGRAM, QW
     Route: 048
     Dates: start: 20190415, end: 20190523
  6. METHOTREXATE [Suspect]
     Active Substance: METHOTREXATE
     Dosage: 25 MILLIGRAM, QW (RECEIVING MORE THAN 3 YEARS)
     Route: 048
     Dates: start: 20190523
  7. CYCLOSPORINE [Suspect]
     Active Substance: CYCLOSPORINE
     Indication: Angiolymphoid hyperplasia with eosinophilia
     Dosage: UNK
     Route: 048
  8. DAPSONE [Suspect]
     Active Substance: DAPSONE
     Indication: Granuloma skin
     Dosage: 25 MILLIGRAM, QD
     Route: 048
     Dates: start: 20181010, end: 20181205
  9. DAPSONE [Suspect]
     Active Substance: DAPSONE
     Dosage: 100 MILLIGRAM, QD
     Route: 048
     Dates: start: 20181205, end: 20191122
  10. DAPSONE [Suspect]
     Active Substance: DAPSONE
     Dosage: 150 MILLIGRAM, QD
     Route: 048
     Dates: start: 20191122, end: 20200918
  11. DAPSONE [Suspect]
     Active Substance: DAPSONE
     Dosage: 100 MILLIGRAM, QD
     Route: 048
     Dates: start: 20200918, end: 20201120
  12. DAPSONE [Suspect]
     Active Substance: DAPSONE
     Dosage: 50 MILLIGRAM, QD
     Route: 048
     Dates: start: 20201120, end: 20210716
  13. DAPSONE [Suspect]
     Active Substance: DAPSONE
     Dosage: 100 MILLIGRAM, QD
     Route: 048
     Dates: start: 20210716, end: 20220331
  14. DAPSONE [Suspect]
     Active Substance: DAPSONE
     Dosage: 150 MILLIGRAM, QD
     Route: 048
     Dates: start: 20220331, end: 20220602
  15. GABAPENTIN [Suspect]
     Active Substance: GABAPENTIN
     Indication: Granuloma skin
     Dosage: 300 MILLIGRAM, QD
     Route: 065
     Dates: start: 20220331, end: 20221021
  16. GABAPENTIN [Suspect]
     Active Substance: GABAPENTIN
     Dosage: 300 MILLIGRAM, QD
     Route: 065
  17. MINOCYCLINE [Suspect]
     Active Substance: MINOCYCLINE HYDROCHLORIDE
     Indication: Granuloma skin
     Dosage: 100 MILLIGRAM, BID
     Route: 065
     Dates: start: 20180905, end: 20181017
  18. TACROLIMUS [Suspect]
     Active Substance: TACROLIMUS
     Indication: Granuloma skin
     Dosage: 0.1 PERCENT, BID
     Route: 065
     Dates: start: 20210108, end: 20210820
  19. TACROLIMUS [Suspect]
     Active Substance: TACROLIMUS
     Dosage: 0.1 PERCENT, BID
     Route: 065
     Dates: start: 20220321, end: 20220504
  20. DOXEPIN [Suspect]
     Active Substance: DOXEPIN
     Indication: Granuloma skin
     Dosage: 10 MG/ML, DAILY, QD
     Route: 065
     Dates: start: 20210414, end: 20210813
  21. CLOBETASOL [Suspect]
     Active Substance: CLOBETASOL
     Indication: Angiolymphoid hyperplasia with eosinophilia
     Dosage: 0.05 PERCENT, QD, AS NEEDED
     Route: 065
     Dates: start: 20180518, end: 20181205
  22. CLOBETASOL [Suspect]
     Active Substance: CLOBETASOL
     Indication: Granuloma skin
  23. CLOBETASOL [Suspect]
     Active Substance: CLOBETASOL
     Indication: Angiolymphoid hyperplasia with eosinophilia
     Dosage: 0.05 PERCENT (FOAM: 2-3 TIMES WEEKLY)
     Route: 065
     Dates: start: 20181205
  24. CLOBETASOL [Suspect]
     Active Substance: CLOBETASOL
     Indication: Granuloma skin
  25. MUPIROCIN [Suspect]
     Active Substance: MUPIROCIN
     Indication: Granuloma skin
     Dosage: 2 PERCENT, BID
     Route: 065
     Dates: start: 20191122, end: 20200217
  26. MUPIROCIN [Suspect]
     Active Substance: MUPIROCIN
     Dosage: 2 PERCENT
     Route: 065
     Dates: start: 20200612, end: 20210121
  27. TRIAMCINOLONE ACETONIDE [Suspect]
     Active Substance: TRIAMCINOLONE ACETONIDE
     Indication: Granuloma skin
     Dosage: 40 MG/ML EVERY 6-12 WK
     Route: 026
     Dates: start: 20181205, end: 20210414
  28. HYDROXYCHLOROQUINE [Suspect]
     Active Substance: HYDROXYCHLOROQUINE
     Indication: Granuloma skin
     Dosage: 400 MILLIGRAM, QD
     Route: 065
     Dates: start: 20201102, end: 20220602
  29. HYDROXYCHLOROQUINE [Suspect]
     Active Substance: HYDROXYCHLOROQUINE
     Dosage: 200 MILLIGRAM, QD
     Route: 065
     Dates: start: 20220602, end: 20221021
  30. HYDROXYCHLOROQUINE [Suspect]
     Active Substance: HYDROXYCHLOROQUINE
     Dosage: 200 MILLIGRAM, QD
     Route: 065
  31. METHOTREXATE [Concomitant]
     Active Substance: METHOTREXATE
     Indication: Angiolymphoid hyperplasia with eosinophilia
     Dosage: UNK
     Route: 026
  32. HYDROXYZINE [Concomitant]
     Active Substance: HYDROXYZINE HYDROCHLORIDE
     Indication: Angiolymphoid hyperplasia with eosinophilia
     Dosage: 25-50 MG DAILY, AS NEEDED, QD
     Route: 065
     Dates: start: 20180318
  33. FEXOFENADINE [Concomitant]
     Active Substance: FEXOFENADINE HYDROCHLORIDE
     Indication: Angiolymphoid hyperplasia with eosinophilia
     Dosage: UNK
     Route: 065
  34. FLUOROURACIL [Concomitant]
     Active Substance: FLUOROURACIL
     Indication: Angiolymphoid hyperplasia with eosinophilia
     Dosage: UNK
     Route: 026

REACTIONS (4)
  - Drug ineffective [Unknown]
  - Gastrointestinal disorder [Unknown]
  - Methaemoglobinaemia [Unknown]
  - Off label use [Unknown]
